FAERS Safety Report 17240674 (Version 1)
Quarter: 2020Q1

REPORT INFORMATION
  Report Type: Spontaneous
  Country: ES (occurrence: ES)
  Receive Date: 20200107
  Receipt Date: 20200107
  Transmission Date: 20200409
  Serious: Yes (Death, Other)
  Sender: FDA-Public Use
  Company Number: ES-SCIEGEN PHARMACEUTICALS INC-2019SCILIT00401

PATIENT
  Age: 50 Year
  Sex: Male

DRUGS (7)
  1. NORDAZEPAM [Suspect]
     Active Substance: NORDAZEPAM
  2. LORMETAZEPAM [Suspect]
     Active Substance: LORMETAZEPAM
  3. CLOTIAPINE [Suspect]
     Active Substance: CLOTHIAPINE
  4. DIAZEPAM. [Suspect]
     Active Substance: DIAZEPAM
  5. TEMAZEPAM. [Suspect]
     Active Substance: TEMAZEPAM
  6. QUETIAPINE. [Suspect]
     Active Substance: QUETIAPINE
  7. LORAZEPAM. [Suspect]
     Active Substance: LORAZEPAM

REACTIONS (3)
  - Toxicity to various agents [Unknown]
  - Sudden death [Fatal]
  - Myocardial fibrosis [Unknown]
